FAERS Safety Report 5614849-0 (Version None)
Quarter: 2008Q1

REPORT INFORMATION
  Report Type: 
  Country: None (occurrence: None)
  Receive Date: 20080131
  Receipt Date: 20080117
  Transmission Date: 20080703
  Serious: Yes (Other)
  Sender: FDA-Public Use
  Company Number: STI-2008-00222

PATIENT
  Age: 20 Year
  Sex: Female

DRUGS (2)
  1. 520 C CLARIPEL  (HYDOQUINONE) [Suspect]
     Indication: SKIN HYPERPIGMENTATION
     Dosage: IN THE MORNING TOPICAL
     Route: 061
     Dates: start: 20071101
  2. SUNSCREEN SPF 40 (SUNSCREEN) [Concomitant]

REACTIONS (2)
  - CAUSTIC INJURY [None]
  - CONDITION AGGRAVATED [None]
